FAERS Safety Report 19448632 (Version 1)
Quarter: 2021Q2

REPORT INFORMATION
  Report Type: Spontaneous
  Country: US (occurrence: US)
  Receive Date: 20210622
  Receipt Date: 20210622
  Transmission Date: 20210717
  Serious: No
  Sender: FDA-Public Use
  Company Number: ALC2020US010181

PATIENT

DRUGS (2)
  1. PATADAY [Suspect]
     Active Substance: OLOPATADINE HYDROCHLORIDE
     Indication: PRODUCT USED FOR UNKNOWN INDICATION
     Dosage: 2.5 ML, QD
     Route: 065
  2. PATADAY [Suspect]
     Active Substance: OLOPATADINE HYDROCHLORIDE
     Dosage: 3 DRP
     Route: 065

REACTIONS (5)
  - Visual field defect [Unknown]
  - Vision blurred [Unknown]
  - Herpes zoster [Unknown]
  - Eye pruritus [Unknown]
  - Photopsia [Unknown]
